FAERS Safety Report 14527190 (Version 1)
Quarter: 2018Q1

REPORT INFORMATION
  Report Type: Spontaneous
  Country: US (occurrence: US)
  Receive Date: 20180213
  Receipt Date: 20180213
  Transmission Date: 20180509
  Serious: Yes (Other)
  Sender: FDA-Public Use
  Company Number: US-PFIZER INC-2018061739

PATIENT
  Age: 58 Year
  Sex: Male
  Weight: 98.41 kg

DRUGS (1)
  1. SUTENT [Suspect]
     Active Substance: SUNITINIB MALATE
     Indication: RENAL CELL CARCINOMA
     Dosage: 50 MG, CYCLIC (DAYS 1 TO 14 EVERY 21 DAYS)
     Route: 048
     Dates: start: 201709

REACTIONS (6)
  - Fatigue [Unknown]
  - Asthenia [Unknown]
  - Dysgeusia [Unknown]
  - Hair colour changes [Unknown]
  - Gastrooesophageal reflux disease [Unknown]
  - Hepatitis C [Unknown]
